FAERS Safety Report 13190198 (Version 2)
Quarter: 2017Q1

REPORT INFORMATION
  Report Type: Spontaneous
  Country: US (occurrence: US)
  Receive Date: 20170206
  Receipt Date: 20170224
  Transmission Date: 20170428
  Serious: Yes (Hospitalization)
  Sender: FDA-Public Use
  Company Number: US-JNJFOC-20170203188

PATIENT
  Age: 91 Year
  Sex: Female

DRUGS (3)
  1. XARELTO [Suspect]
     Active Substance: RIVAROXABAN
     Indication: CEREBROVASCULAR ACCIDENT PROPHYLAXIS
     Dosage: 15MG AND 20MG
     Route: 048
     Dates: start: 20120430, end: 20130204
  2. XARELTO [Suspect]
     Active Substance: RIVAROXABAN
     Indication: ATRIAL FIBRILLATION
     Dosage: 15MG AND 20MG
     Route: 048
     Dates: start: 20120430, end: 20130204
  3. XARELTO [Suspect]
     Active Substance: RIVAROXABAN
     Indication: THROMBOSIS PROPHYLAXIS
     Dosage: 15MG AND 20MG
     Route: 048
     Dates: start: 20120430, end: 20130204

REACTIONS (3)
  - Internal haemorrhage [Recovering/Resolving]
  - Gastrointestinal haemorrhage [Recovering/Resolving]
  - Acute kidney injury [Recovering/Resolving]

NARRATIVE: CASE EVENT DATE: 20120917
